FAERS Safety Report 7637542-1 (Version None)
Quarter: 2011Q3

REPORT INFORMATION
  Report Type: 
  Country: None (occurrence: None)
  Receive Date: 20110726
  Receipt Date: 20110721
  Transmission Date: 20111222
  Serious: Yes (Hospitalization)
  Sender: FDA-Public Use
  Company Number: JP-ABBOTT-11P-087-0840827-00

PATIENT
  Sex: Female
  Weight: 49.3 kg

DRUGS (10)
  1. FLAVIN ADENINE DINUCLEOTIDE [Concomitant]
     Indication: PRODUCT USED FOR UNKNOWN INDICATION
     Route: 048
  2. REBAMIPIDE [Concomitant]
     Indication: PRODUCT USED FOR UNKNOWN INDICATION
     Route: 048
  3. LOXOPROFEN SODIUM HYDRATE [Concomitant]
     Indication: PRODUCT USED FOR UNKNOWN INDICATION
     Route: 048
  4. HUMIRA [Suspect]
  5. MESALAMINE [Concomitant]
     Indication: CROHN'S DISEASE
     Route: 048
  6. PYRIDOXAL PHOSPHATE HYDRATE [Concomitant]
     Indication: PRODUCT USED FOR UNKNOWN INDICATION
     Route: 048
  7. HUMIRA [Suspect]
     Indication: CROHN'S DISEASE
     Route: 058
     Dates: start: 20101130, end: 20101130
  8. HUMIRA [Suspect]
  9. DIMETICONE [Concomitant]
     Indication: PRODUCT USED FOR UNKNOWN INDICATION
     Route: 048
  10. MAGNESIUM OXIDE [Concomitant]
     Indication: PRODUCT USED FOR UNKNOWN INDICATION
     Route: 048

REACTIONS (1)
  - SUBILEUS [None]
